FAERS Safety Report 23747717 (Version 4)
Quarter: 2025Q3

REPORT INFORMATION
  Report Type: Spontaneous
  Country: US (occurrence: US)
  Receive Date: 20240416
  Receipt Date: 20250929
  Transmission Date: 20251021
  Serious: No
  Sender: BIOGEN
  Company Number: US-BIOGEN-2023BI01233232

PATIENT
  Sex: Female

DRUGS (9)
  1. VUMERITY [Suspect]
     Active Substance: DIROXIMEL FUMARATE
     Indication: Relapsing multiple sclerosis
     Dosage: ALSO STARTED ON 15-DEC-2022
     Route: 050
     Dates: start: 20221201
  2. VITAMIN D [Concomitant]
     Active Substance: VITAMIN D NOS
     Route: 050
  3. PROZAC [Concomitant]
     Active Substance: FLUOXETINE HYDROCHLORIDE
     Route: 050
  4. METFORMIN HYDROCHLORIDE [Concomitant]
     Active Substance: METFORMIN HYDROCHLORIDE
     Route: 050
  5. ASPIRIN [Concomitant]
     Active Substance: ASPIRIN
     Route: 050
  6. FISH OIL [Concomitant]
     Active Substance: FISH OIL
     Route: 050
  7. IRON [Concomitant]
     Active Substance: IRON
     Route: 050
  8. MAGNESIUM [Concomitant]
     Active Substance: MAGNESIUM
     Route: 050
  9. JUNEL [Concomitant]
     Active Substance: ETHINYL ESTRADIOL\NORETHINDRONE ACETATE
     Route: 050

REACTIONS (3)
  - Flatulence [Unknown]
  - Rash erythematous [Unknown]
  - Flushing [Unknown]
